FAERS Safety Report 12517100 (Version 2)
Quarter: 2017Q1

REPORT INFORMATION
  Report Type: Spontaneous
  Country: US (occurrence: US)
  Receive Date: 20160630
  Receipt Date: 20170125
  Transmission Date: 20170428
  Serious: No
  Sender: FDA-Public Use
  Company Number: US-PFIZER INC-2016285893

PATIENT
  Age: 62 Year
  Sex: Female

DRUGS (7)
  1. IODINE. [Suspect]
     Active Substance: IODINE
     Dosage: UNK
  2. DETROL [Suspect]
     Active Substance: TOLTERODINE TARTRATE
     Dosage: UNK
  3. MOBIC [Suspect]
     Active Substance: MELOXICAM
     Dosage: UNK
  4. DICLOFENAC SODIUM. [Suspect]
     Active Substance: DICLOFENAC SODIUM
     Dosage: UNK
  5. PROCARDIA [Suspect]
     Active Substance: NIFEDIPINE
     Dosage: UNK
  6. VOLTAREN [Suspect]
     Active Substance: DICLOFENAC SODIUM
     Dosage: UNK
  7. IRON [Suspect]
     Active Substance: IRON
     Dosage: UNK

REACTIONS (1)
  - Drug hypersensitivity [Unknown]
